FAERS Safety Report 8206220-2 (Version None)
Quarter: 2012Q1

REPORT INFORMATION
  Report Type: 
  Country: None (occurrence: None)
  Receive Date: 20120313
  Receipt Date: 20120307
  Transmission Date: 20120608
  Serious: Yes (Other)
  Sender: FDA-Public Use
  Company Number: PHHY2012FR020580

PATIENT
  Age: 50 Year
  Sex: Female

DRUGS (2)
  1. AFINITOR [Suspect]
     Dosage: 10 MG, UNK
  2. AFINITOR [Suspect]
     Dosage: 5 MG, UNK

REACTIONS (1)
  - SKIN PLAQUE [None]
